FAERS Safety Report 14999541 (Version 2)
Quarter: 2018Q2

REPORT INFORMATION
  Report Type: Spontaneous
  Country: US (occurrence: US)
  Receive Date: 20180612
  Receipt Date: 20180615
  Transmission Date: 20180711
  Serious: Yes (Other)
  Sender: FDA-Public Use
  Company Number: US-SUN PHARMACEUTICAL INDUSTRIES LTD-2018US-175425

PATIENT
  Age: 25 Year
  Sex: Female

DRUGS (8)
  1. KETAMINE [Suspect]
     Active Substance: KETAMINE
     Indication: SICKLE CELL ANAEMIA WITH CRISIS
  2. DIPHENHYDRAMINE. [Suspect]
     Active Substance: DIPHENHYDRAMINE
     Indication: PAIN
     Dosage: 25 MG, QID
     Route: 065
  3. OXYCODONE [Suspect]
     Active Substance: OXYCODONE
     Indication: PAIN MANAGEMENT
     Dosage: UNK
     Route: 065
  4. PARACETAMOL [Suspect]
     Active Substance: ACETAMINOPHEN
     Indication: PAIN
     Dosage: 625 MG, Q4H
     Route: 065
  5. METHADONE [Suspect]
     Active Substance: METHADONE HYDROCHLORIDE
     Indication: PAIN
     Dosage: 10 MG, BID
     Route: 065
  6. HYDROMORPHONE [Suspect]
     Active Substance: HYDROMORPHONE
     Indication: PAIN
     Dosage: 8 MG, QD
     Route: 065
  7. DULOXETINE. [Suspect]
     Active Substance: DULOXETINE
     Indication: PAIN MANAGEMENT
     Route: 065
  8. KETAMINE [Suspect]
     Active Substance: KETAMINE
     Indication: ANALGESIC THERAPY
     Dosage: 10 UNK, UNK
     Route: 065

REACTIONS (3)
  - Premature delivery [Unknown]
  - Drug ineffective [Unknown]
  - Exposure during pregnancy [Unknown]
